FAERS Safety Report 6537787-8 (Version None)
Quarter: 2010Q1

REPORT INFORMATION
  Report Type: 
  Country: None (occurrence: None)
  Receive Date: 20100114
  Receipt Date: 20100111
  Transmission Date: 20100710
  Serious: Yes (Other)
  Sender: FDA-Public Use
  Company Number: US-PFIZER INC-2010004344

PATIENT
  Sex: Female
  Weight: 81.633 kg

DRUGS (6)
  1. LYRICA [Suspect]
     Indication: FIBROMYALGIA
     Dosage: 100 MG, 3X/DAY
     Route: 048
     Dates: start: 20091201
  2. LYRICA [Suspect]
     Dosage: 75 MG, 3X/DAY
     Route: 048
     Dates: start: 20091201, end: 20091201
  3. FLEXERIL [Concomitant]
     Indication: MUSCLE RELAXANT THERAPY
     Dosage: 10 MG, 3X/DAY
  4. LISINOPRIL [Concomitant]
     Indication: HYPERTENSION
     Dosage: 5 MG, 1X/DAY
  5. PREDNISONE [Concomitant]
     Indication: BRONCHITIS
     Dosage: UNK
  6. AUGMENTIN [Concomitant]
     Indication: BRONCHITIS
     Dosage: UNK

REACTIONS (2)
  - CARDIAC FLUTTER [None]
  - PALPITATIONS [None]
